FAERS Safety Report 5934613-2 (Version None)
Quarter: 2008Q4

REPORT INFORMATION
  Report Type: 
  Country: None (occurrence: None)
  Receive Date: 20081029
  Receipt Date: 20081021
  Transmission Date: 20090506
  Serious: Yes (Other)
  Sender: FDA-Public Use
  Company Number: FR-AMGEN-US312540

PATIENT
  Sex: Female

DRUGS (4)
  1. ENBREL [Suspect]
     Indication: PSORIATIC ARTHROPATHY
     Route: 058
     Dates: start: 20080917
  2. SERETIDE [Concomitant]
     Dosage: UNKNOWN
     Route: 065
  3. PULMICORT-100 [Concomitant]
     Dosage: UNKNOWN
     Route: 065
  4. NOVATREX [Concomitant]
     Dosage: UNKNOWN
     Route: 048

REACTIONS (4)
  - BRONCHITIS [None]
  - CONDITION AGGRAVATED [None]
  - DYSPNOEA [None]
  - PHARYNGEAL OEDEMA [None]
